FAERS Safety Report 17871326 (Version 2)
Quarter: 2020Q2

REPORT INFORMATION
  Report Type: Spontaneous
  Country: US (occurrence: US)
  Receive Date: 20200608
  Receipt Date: 20200630
  Transmission Date: 20200714
  Serious: Yes (Other)
  Sender: FDA-Public Use
  Company Number: US-BAYER-2020-107584

PATIENT
  Age: 33 Year
  Sex: Female

DRUGS (1)
  1. MIRENA [Suspect]
     Active Substance: LEVONORGESTREL
     Indication: CONTRACEPTION
     Dosage: 20 ?G PER DAY CONTINUOUSLY
     Route: 015
     Dates: start: 20200228, end: 20200516

REACTIONS (4)
  - Device expulsion [Recovered/Resolved]
  - Abdominal pain lower [None]
  - Genital haemorrhage [None]
  - Medical device pain [None]

NARRATIVE: CASE EVENT DATE: 2020
